FAERS Safety Report 21157229 (Version 2)
Quarter: 2022Q3

REPORT INFORMATION
  Report Type: Spontaneous
  Country: US (occurrence: US)
  Receive Date: 20220801
  Receipt Date: 20220802
  Transmission Date: 20221027
  Serious: Yes (Disabling, Other)
  Sender: FDA-Public Use
  Company Number: US-PFIZER INC-202201018116

PATIENT
  Age: 71 Year
  Sex: Female

DRUGS (4)
  1. ZYVOX [Suspect]
     Active Substance: LINEZOLID
     Indication: Pneumonia
     Dosage: UNK
  2. ZYVOX [Suspect]
     Active Substance: LINEZOLID
     Indication: Wound infection staphylococcal
  3. DOXYCYCLINE [Concomitant]
     Active Substance: DOXYCYCLINE
     Dosage: UNK
  4. BACTRIM [Concomitant]
     Active Substance: SULFAMETHOXAZOLE\TRIMETHOPRIM
     Dosage: UNK

REACTIONS (9)
  - Myelosuppression [Unknown]
  - Breast cancer [Unknown]
  - Back injury [Unknown]
  - Reactive airways dysfunction syndrome [Unknown]
  - White blood cell count decreased [Unknown]
  - Infection [Unknown]
  - Injury [Unknown]
  - Blood immunoglobulin G decreased [Unknown]
  - Drug resistance [Unknown]
